FAERS Safety Report 12119532 (Version 3)
Quarter: 2017Q3

REPORT INFORMATION
  Report Type: Spontaneous
  Country: US (occurrence: US)
  Receive Date: 20160226
  Receipt Date: 20170811
  Transmission Date: 20171127
  Serious: Yes (Other)
  Sender: FDA-Public Use
  Company Number: US-PFIZER INC-2016109044

PATIENT
  Age: 76 Year
  Sex: Female

DRUGS (10)
  1. OMEGA-3 FATTY ACIDS [Concomitant]
     Active Substance: OMEGA-3 FATTY ACIDS
     Dosage: 4 DF, DAILY
  2. CADUET [Suspect]
     Active Substance: AMLODIPINE BESYLATE\ATORVASTATIN CALCIUM
     Indication: HYPERTENSION
     Dosage: 10 MG (1 DF), 1X/DAY (EACH EVENING AT BEDTIME)
     Route: 048
  3. LISINOPRIL. [Concomitant]
     Active Substance: LISINOPRIL
     Dosage: 40 MG, 1X/DAY
  4. GLIPIZIDE. [Concomitant]
     Active Substance: GLIPIZIDE
     Dosage: 10 MG, 2X/DAY
     Route: 048
  5. ASPIRIN. [Concomitant]
     Active Substance: ASPIRIN
     Dosage: 81 MG, 1X/DAY
     Route: 048
  6. LOSARTAN AND HYDROCHLOROTHIAZIDE [Concomitant]
     Active Substance: HYDROCHLOROTHIAZIDE\LOSARTAN POTASSIUM
     Dosage: 1 DF, 1X/DAY (LOSARTAN POTASSIUM: 100MG/ HYDROCHLOROTHIAZIDE: 25MG (Q AM)
     Route: 048
  7. NIACIN. [Concomitant]
     Active Substance: NIACIN
     Dosage: 1000 MG, DAILY (500MG, 2 DAILY)
  8. METFORMIN HYDROCHLORIDE. [Concomitant]
     Active Substance: METFORMIN HYDROCHLORIDE
     Dosage: 1000 MG, 2X/DAY (WITH MEAL)
     Route: 048
  9. ONGLYZA [Concomitant]
     Active Substance: SAXAGLIPTIN HYDROCHLORIDE
     Dosage: 5 MG, DAILY
     Route: 048
  10. CRANBERRY. [Concomitant]
     Active Substance: CRANBERRY
     Dosage: 6000 MG, 1X/DAY (1500MG, 4 TABS QD)
     Route: 048

REACTIONS (5)
  - Deafness [Not Recovered/Not Resolved]
  - Tobacco abuse [Recovered/Resolved]
  - Hypercholesterolaemia [Recovered/Resolved]
  - Dizziness [Recovered/Resolved]
  - Tinnitus [Recovered/Resolved]
